FAERS Safety Report 5422503-3 (Version None)
Quarter: 2007Q3

REPORT INFORMATION
  Report Type: 
  Country: None (occurrence: None)
  Receive Date: 20070822
  Receipt Date: 20070816
  Transmission Date: 20080115
  Serious: Yes (Hospitalization)
  Sender: FDA-Public Use
  Company Number: B0484079A

PATIENT
  Sex: Male

DRUGS (1)
  1. SENSODYNE-F [Suspect]
     Indication: DRUG USE FOR UNKNOWN INDICATION
     Dosage: 50ML UNKNOWN

REACTIONS (4)
  - BALANCE DISORDER [None]
  - DYSPNOEA [None]
  - LOWER RESPIRATORY TRACT INFECTION [None]
  - PHARMACEUTICAL PRODUCT COMPLAINT [None]
